FAERS Safety Report 19987452 (Version 1)
Quarter: 2021Q4

REPORT INFORMATION
  Report Type: Other
  Country: EG (occurrence: EG)
  Receive Date: 20211023
  Receipt Date: 20211023
  Transmission Date: 20220304
  Serious: Yes (Other)
  Sender: FDA-Public Use
  Company Number: EG-ROCHE-2932744

PATIENT

DRUGS (4)
  1. TOCILIZUMAB [Suspect]
     Active Substance: TOCILIZUMAB
     Indication: COVID-19
     Dosage: 4-8 MG/KG OVER 60 MIN WITH A MAXIMUM 800 MG PER DOSE
     Route: 042
  2. HYDROXYCHLOROQUINE [Suspect]
     Active Substance: HYDROXYCHLOROQUINE
     Indication: COVID-19
     Route: 065
  3. LOPINAVIR\RITONAVIR [Suspect]
     Active Substance: LOPINAVIR\RITONAVIR
     Indication: COVID-19
     Route: 065
  4. AZITHROMYCIN ANHYDROUS [Suspect]
     Active Substance: AZITHROMYCIN ANHYDROUS
     Indication: COVID-19
     Route: 065

REACTIONS (8)
  - Staphylococcal infection [Unknown]
  - Klebsiella infection [Unknown]
  - Acinetobacter infection [Unknown]
  - Neutropenia [Unknown]
  - Enterobacter infection [Unknown]
  - Candida infection [Unknown]
  - Hepatic enzyme increased [Unknown]
  - Off label use [Unknown]
